FAERS Safety Report 18410601 (Version 2)
Quarter: 2021Q2

REPORT INFORMATION
  Report Type: Spontaneous
  Country: US (occurrence: US)
  Receive Date: 20201021
  Receipt Date: 20210521
  Transmission Date: 20210717
  Serious: Yes (Life-Threatening, Hospitalization)
  Sender: FDA-Public Use
  Company Number: US-PFIZER INC-2020402407

PATIENT
  Age: 14 Year
  Sex: Male

DRUGS (6)
  1. MILRINONE [Suspect]
     Active Substance: MILRINONE
     Indication: PULMONARY HYPERTENSION
     Dosage: UNK
  2. AMBRISENTAN [Suspect]
     Active Substance: AMBRISENTAN
     Indication: VENOOCCLUSIVE DISEASE
  3. TREPROSTINIL. [Suspect]
     Active Substance: TREPROSTINIL
     Indication: PULMONARY HYPERTENSION
     Dosage: UNK
  4. TREPROSTINIL. [Suspect]
     Active Substance: TREPROSTINIL
     Indication: VENOOCCLUSIVE DISEASE
  5. AMBRISENTAN [Suspect]
     Active Substance: AMBRISENTAN
     Indication: PULMONARY HYPERTENSION
     Dosage: UNK
  6. MILRINONE [Suspect]
     Active Substance: MILRINONE
     Indication: VENOOCCLUSIVE DISEASE

REACTIONS (3)
  - Drug ineffective [Unknown]
  - Cardiac arrest [Unknown]
  - Pulmonary hypertensive crisis [Unknown]
